FAERS Safety Report 5144773-1 (Version None)
Quarter: 2006Q4

REPORT INFORMATION
  Report Type: 
  Country: None (occurrence: None)
  Receive Date: 20061107
  Receipt Date: 20060424
  Transmission Date: 20070319
  Serious: Yes (Other)
  Sender: FDA-Public Use
  Company Number: PHNU2006DE01791

PATIENT
  Sex: Female

DRUGS (7)
  1. METOHEXAL [Concomitant]
     Dosage: 0.5 DF, BID
     Dates: start: 20050101, end: 20060423
  2. METOHEXAL [Concomitant]
     Dosage: 1.5 DF/D (0.5-0-1)
     Dates: start: 20060426
  3. POSORUTIN [Concomitant]
     Dates: start: 20050101
  4. PROTAGENT [Concomitant]
  5. VITAMINS NOS [Concomitant]
  6. DIOVAN [Suspect]
     Indication: HYPERTENSION
     Dosage: 1 DF, QD
     Dates: start: 19960101, end: 20060501
  7. DIOVAN [Suspect]
     Dosage: DOSAGE REDUCED
     Dates: start: 20060501

REACTIONS (9)
  - BLOOD PRESSURE INADEQUATELY CONTROLLED [None]
  - MUSCLE SPASMS [None]
  - MYALGIA [None]
  - PETECHIAE [None]
  - PHOTOPSIA [None]
  - SICCA SYNDROME [None]
  - SKIN HAEMORRHAGE [None]
  - VISUAL DISTURBANCE [None]
  - VITREOUS OPACITIES [None]
